FAERS Safety Report 4668816-4 (Version None)
Quarter: 2005Q2

REPORT INFORMATION
  Report Type: 
  Country: None (occurrence: None)
  Receive Date: 20050523
  Receipt Date: 20050222
  Transmission Date: 20051028
  Serious: Yes (Other)
  Sender: FDA-Public Use
  Company Number: PHNU2005DE01048

PATIENT
  Age: 62 Year
  Sex: Female
  Weight: 61 kg

DRUGS (4)
  1. ZOMETA [Suspect]
     Indication: METASTASES TO BONE
     Dosage: 4 MG, QMO
     Route: 042
     Dates: start: 20020919, end: 20041109
  2. FEMARA [Concomitant]
     Indication: BREAST CANCER FEMALE
     Dosage: 2.5 MG, QD
     Route: 048
     Dates: start: 20020919
  3. TAXOTERE [Concomitant]
     Indication: BREAST CANCER METASTATIC
     Dosage: 40 MG, QD
     Route: 042
     Dates: start: 20020716, end: 20021210
  4. HERCEPTIN [Concomitant]
     Indication: BREAST CANCER METASTATIC
     Dosage: 363 MG, QD
     Route: 042
     Dates: start: 20020716

REACTIONS (3)
  - BONE FORMATION DECREASED [None]
  - DENTAL OPERATION [None]
  - OSTEONECROSIS [None]
